FAERS Safety Report 6700079-8 (Version None)
Quarter: 2010Q2

REPORT INFORMATION
  Report Type: 
  Country: None (occurrence: None)
  Receive Date: 20100427
  Receipt Date: 20100427
  Transmission Date: 20101027
  Serious: Yes (Other)
  Sender: FDA-Public Use
  Company Number: None

PATIENT
  Sex: Female
  Weight: 55.3388 kg

DRUGS (2)
  1. DETROL LA [Suspect]
     Indication: ENURESIS
     Dosage: ONE DAILY PO
     Route: 048
     Dates: start: 20100114, end: 20100423
  2. VESICARE [Concomitant]

REACTIONS (1)
  - NO THERAPEUTIC RESPONSE [None]
